FAERS Safety Report 8355284-4 (Version None)
Quarter: 2012Q2

REPORT INFORMATION
  Report Type: 
  Country: None (occurrence: None)
  Receive Date: 20120511
  Receipt Date: 20110614
  Transmission Date: 20120825
  Serious: No
  Sender: FDA-Public Use
  Company Number: US-TEVA-2011002830

PATIENT
  Sex: Male
  Weight: 107.6 kg

DRUGS (10)
  1. SPIRIVA [Concomitant]
     Dates: start: 20080101
  2. WARFARIN SODIUM [Concomitant]
     Dates: start: 20080101
  3. LIPITOR [Concomitant]
     Dates: start: 20080101
  4. DIOVAN HCT [Concomitant]
     Dates: start: 20080101
  5. XOPENEX HFA [Concomitant]
     Dates: start: 20080101
  6. NUVIGIL [Suspect]
     Indication: FATIGUE
     Dosage: 150 MILLIGRAM;
     Route: 048
     Dates: start: 20110527, end: 20110602
  7. NUVIGIL [Suspect]
     Dosage: 75 MILLIGRAM;
     Route: 048
     Dates: start: 20110603
  8. CLONAZEPAM [Concomitant]
     Dates: start: 20080101
  9. ALPRAZOLAM [Concomitant]
     Dates: start: 20080101
  10. SEROQUEL [Concomitant]
     Dates: start: 20080101

REACTIONS (5)
  - ANXIETY [None]
  - NERVOUSNESS [None]
  - FEELING JITTERY [None]
  - INSOMNIA [None]
  - THERAPEUTIC RESPONSE UNEXPECTED [None]
